FAERS Safety Report 10375432 (Version 2)
Quarter: 2014Q3

REPORT INFORMATION
  Report Type: Report from Study
  Country: US (occurrence: US)
  Receive Date: 20140811
  Receipt Date: 20140811
  Transmission Date: 20150326
  Serious: Yes (Death, Hospitalization, Other)
  Sender: FDA-Public Use
  Company Number: US-ASTELLAS-2014US009376

PATIENT
  Age: 49 Year
  Sex: Female

DRUGS (1)
  1. ERLOTINIB [Suspect]
     Active Substance: ERLOTINIB
     Indication: LUNG ADENOCARCINOMA METASTATIC
     Dates: start: 20110726, end: 20110816

REACTIONS (8)
  - Respiratory failure [Unknown]
  - Pulmonary haemorrhage [Unknown]
  - Deep vein thrombosis [Unknown]
  - Dehydration [Unknown]
  - Dyspnoea [Unknown]
  - Malaise [Unknown]
  - Thrombocytopenia [Unknown]
  - Metastatic neoplasm [Fatal]

NARRATIVE: CASE EVENT DATE: 20110816
